FAERS Safety Report 11431086 (Version 1)
Quarter: 2015Q3

REPORT INFORMATION
  Report Type: Spontaneous
  Country: US (occurrence: US)
  Receive Date: 20150828
  Receipt Date: 20150828
  Transmission Date: 20151125
  Serious: Yes (Other)
  Sender: FDA-Public Use
  Company Number: US-BAYER-2015-406182

PATIENT
  Age: 62 Year
  Sex: Female
  Weight: 120.18 kg

DRUGS (5)
  1. PROZAC [Concomitant]
     Active Substance: FLUOXETINE HYDROCHLORIDE
     Dosage: UNK UNK, UNK
  2. BAYER EXTRA STRENGTH ASPIRIN [Suspect]
     Active Substance: ASPIRIN
     Indication: PAIN
  3. BAYER ADVANCED ASPIRIN EXTRA STRENGTH [Suspect]
     Active Substance: ASPIRIN
     Indication: ARTHRITIS
     Dosage: 2 DF, QD
     Route: 048
     Dates: start: 2012
  4. BAYER EXTRA STRENGTH ASPIRIN [Suspect]
     Active Substance: ASPIRIN
     Indication: ARTHRITIS
     Dosage: 2 DF, QD
  5. ARTHROTEC [DICLOFENAC SODIUM,MISOPROSTOL] [Concomitant]
     Dosage: UNK UNK, UNK

REACTIONS (4)
  - Pharyngeal haemorrhage [Recovered/Resolved]
  - Throat irritation [Recovered/Resolved]
  - Drug ineffective [None]
  - Feeding disorder [Recovered/Resolved]

NARRATIVE: CASE EVENT DATE: 2012
